FAERS Safety Report 7609376-5 (Version None)
Quarter: 2011Q3

REPORT INFORMATION
  Report Type: 
  Country: None (occurrence: None)
  Receive Date: 20110714
  Receipt Date: 20110707
  Transmission Date: 20111222
  Serious: Yes (Other)
  Sender: FDA-Public Use
  Company Number: PHHY2011BR61135

PATIENT
  Sex: Male

DRUGS (1)
  1. TRILEPTAL [Suspect]
     Dosage: 300 MG, UNK

REACTIONS (1)
  - LACRIMAL DISORDER [None]
